FAERS Safety Report 7261552-X (Version None)
Quarter: 2011Q1

REPORT INFORMATION
  Report Type: 
  Country: None (occurrence: None)
  Receive Date: 20110124
  Receipt Date: 20110124
  Transmission Date: 20110831
  Serious: No
  Sender: FDA-Public Use
  Company Number: None

PATIENT
  Age: 75 Year
  Sex: Female

DRUGS (1)
  1. ALCOHOL SWABS BOCA/ULTIET [Suspect]
     Indication: DIABETES MELLITUS
     Dosage: ON THE SKIN DAILY FOR THE PAST COUPLE OF WEEKS

REACTIONS (5)
  - ERYTHEMA [None]
  - INFLUENZA LIKE ILLNESS [None]
  - SWELLING [None]
  - COUGH [None]
  - DYSPHONIA [None]
